FAERS Safety Report 6666090-0 (Version None)
Quarter: 2010Q2

REPORT INFORMATION
  Report Type: 
  Country: None (occurrence: None)
  Receive Date: 20100402
  Receipt Date: 20100330
  Transmission Date: 20101027
  Serious: Yes (Death)
  Sender: FDA-Public Use
  Company Number: US-ASTRAZENECA-2010SE14117

PATIENT
  Age: 21 Year
  Sex: Male

DRUGS (3)
  1. SEROQUEL XR [Suspect]
     Dosage: PATIENT TOOK A LARGE AMOUNT OF SEROQUEL XR
     Route: 048
  2. HYDROCODONE [Suspect]
     Route: 048
  3. ETOH [Suspect]
     Route: 048

REACTIONS (1)
  - OVERDOSE [None]
